FAERS Safety Report 12455751 (Version 1)
Quarter: 2016Q2

REPORT INFORMATION
  Report Type: Spontaneous
  Country: US (occurrence: US)
  Receive Date: 20160610
  Receipt Date: 20160610
  Transmission Date: 20160815
  Serious: Yes (Other)
  Sender: FDA-Public Use
  Company Number: US-BAYER-2016-111791

PATIENT
  Age: 5 Year
  Sex: Male
  Weight: 20.41 kg

DRUGS (3)
  1. COPPERTONE KIDS SPF 30 [Suspect]
     Active Substance: AVOBENZONE\HOMOSALATE\OCTISALATE\OCTOCRYLENE
     Dosage: UNK, Q2HR
     Route: 061
     Dates: start: 20160605
  2. COPPERTONE KIDS SPF 30 [Suspect]
     Active Substance: AVOBENZONE\HOMOSALATE\OCTISALATE\OCTOCRYLENE
     Dosage: UNK, Q2HR
     Route: 061
     Dates: start: 20160529
  3. ALOE VERA [Concomitant]
     Active Substance: ALOE VERA LEAF

REACTIONS (4)
  - Chemical injury [Not Recovered/Not Resolved]
  - Chemical injury [Not Recovered/Not Resolved]
  - Sunburn [Not Recovered/Not Resolved]
  - Sunburn [Not Recovered/Not Resolved]

NARRATIVE: CASE EVENT DATE: 20160529
